FAERS Safety Report 24090829 (Version 1)
Quarter: 2024Q3

REPORT INFORMATION
  Report Type: Spontaneous
  Country: ZA (occurrence: ZA)
  Receive Date: 20240715
  Receipt Date: 20240715
  Transmission Date: 20241016
  Serious: Yes (Hospitalization)
  Sender: ELI LILLY AND CO
  Company Number: ZA-ELI_LILLY_AND_COMPANY-ZA202407005767

PATIENT
  Age: 2 Month

DRUGS (1)
  1. IXEKIZUMAB [Suspect]
     Active Substance: IXEKIZUMAB
     Indication: Psoriatic arthropathy
     Dosage: 80 MG, MONTHLY (1/M)

REACTIONS (3)
  - Feeding disorder [Unknown]
  - COVID-19 [Unknown]
  - Foetal exposure via father [Recovered/Resolved]
